FAERS Safety Report 6227562-6 (Version None)
Quarter: 2009Q2

REPORT INFORMATION
  Report Type: 
  Country: None (occurrence: None)
  Receive Date: 20090612
  Receipt Date: 20090531
  Transmission Date: 20091009
  Serious: Yes (Other)
  Sender: FDA-Public Use
  Company Number: CN-PFIZER INC-2009224864

PATIENT
  Age: 20 Year

DRUGS (2)
  1. ZOLOFT [Suspect]
     Indication: DEPRESSION
     Route: 048
     Dates: start: 20080101
  2. QUETIAPINE [Concomitant]
     Route: 048
     Dates: start: 20080101

REACTIONS (1)
  - EPILEPSY [None]
